FAERS Safety Report 9280718 (Version 2)
Quarter: 2013Q2

REPORT INFORMATION
  Report Type: Spontaneous
  Country: US (occurrence: US)
  Receive Date: 20130509
  Receipt Date: 20130524
  Transmission Date: 20140414
  Serious: Yes (Other)
  Sender: FDA-Public Use
  Company Number: US-PFIZER INC-2013137823

PATIENT
  Age: 86 Year
  Sex: Female

DRUGS (3)
  1. XALATAN [Suspect]
     Indication: GLAUCOMA
     Dosage: 1 GTT, 1X/DAY
     Route: 047
  2. XALATAN [Suspect]
     Indication: MACULAR DEGENERATION
  3. SUCRALFATE [Concomitant]
     Indication: GASTROINTESTINAL DISORDER
     Dosage: 1 G THREE TO FOUR TIMES A DAY

REACTIONS (2)
  - Arthropathy [Unknown]
  - Arthralgia [Unknown]
